FAERS Safety Report 13473174 (Version 2)
Quarter: 2017Q2

REPORT INFORMATION
  Report Type: Spontaneous
  Country: US (occurrence: US)
  Receive Date: 20170424
  Receipt Date: 20170515
  Transmission Date: 20170830
  Serious: No
  Sender: FDA-Public Use
  Company Number: US-BEH-2017079507

PATIENT
  Age: 7 Year
  Sex: Female
  Weight: 29 kg

DRUGS (2)
  1. HUMAN IMMUNOGLOBULIN SC (INN) [Suspect]
     Active Substance: HUMAN IMMUNOGLOBULIN G
     Dosage: UNK
     Route: 065
     Dates: start: 201603
  2. HUMAN IMMUNOGLOBULIN SC (INN) [Suspect]
     Active Substance: HUMAN IMMUNOGLOBULIN G
     Indication: HYPOGAMMAGLOBULINAEMIA
     Dosage: 4 G, 20ML, QW
     Route: 058
     Dates: start: 2016

REACTIONS (2)
  - Infusion site nodule [Not Recovered/Not Resolved]
  - Infusion site nodule [Unknown]

NARRATIVE: CASE EVENT DATE: 2016
